FAERS Safety Report 19793295 (Version 8)
Quarter: 2022Q3

REPORT INFORMATION
  Report Type: Report from Study
  Country: CO (occurrence: CO)
  Receive Date: 20210906
  Receipt Date: 20220627
  Transmission Date: 20221026
  Serious: Yes (Hospitalization)
  Sender: FDA-Public Use
  Company Number: NVSC2020CO105984

PATIENT
  Age: 36 Year
  Sex: Female
  Weight: 66 kg

DRUGS (4)
  1. ELTROMBOPAG OLAMINE [Suspect]
     Active Substance: ELTROMBOPAG OLAMINE
     Indication: Immune thrombocytopenia
     Dosage: 50 MG, QD
     Route: 048
  2. ELTROMBOPAG OLAMINE [Suspect]
     Active Substance: ELTROMBOPAG OLAMINE
     Dosage: 75 MG, QD
     Route: 048
     Dates: start: 2019
  3. ELTROMBOPAG OLAMINE [Suspect]
     Active Substance: ELTROMBOPAG OLAMINE
     Dosage: 75 MG, QD (MORE THAN 2 YEARS AGO)
     Route: 048
     Dates: end: 202110
  4. ELTROMBOPAG OLAMINE [Suspect]
     Active Substance: ELTROMBOPAG OLAMINE
     Dosage: 75 MG, QD
     Route: 048
     Dates: end: 20220421

REACTIONS (14)
  - Platelet count decreased [Unknown]
  - Eye irritation [Unknown]
  - Discouragement [Unknown]
  - Menstrual disorder [Unknown]
  - Arthralgia [Unknown]
  - Temperature intolerance [Unknown]
  - Chest pain [Unknown]
  - Headache [Recovered/Resolved]
  - Product supply issue [Unknown]
  - Platelet count increased [Unknown]
  - Drug ineffective [Unknown]
  - Migraine [Recovered/Resolved]
  - Decreased immune responsiveness [Unknown]
  - Illness [Unknown]

NARRATIVE: CASE EVENT DATE: 20220301
